FAERS Safety Report 4357466-5 (Version None)
Quarter: 2004Q2

REPORT INFORMATION
  Report Type: 
  Country: None (occurrence: None)
  Receive Date: 20040511
  Receipt Date: 20040511
  Transmission Date: 20050107
  Serious: Yes (Life-Threatening, Hospitalization)
  Sender: FDA-Public Use
  Company Number: None

PATIENT
  Age: 51 Year
  Sex: Male
  Weight: 60.8 kg

DRUGS (10)
  1. HYDROCHLOROTHIAZIDE [Suspect]
     Dosage: 25 MG PO QD
     Route: 048
     Dates: end: 20040318
  2. ASPIRIN [Concomitant]
  3. LASIX [Concomitant]
  4. PLAVIX [Concomitant]
  5. ULTRACET [Concomitant]
  6. PROCHLORPERAZINE [Concomitant]
  7. LANTUS [Concomitant]
  8. LISPRO [Concomitant]
  9. CARDIZEM CD [Concomitant]
  10. ZAROXOLY [Concomitant]

REACTIONS (10)
  - ABDOMINAL PAIN [None]
  - ASTHENIA [None]
  - DIARRHOEA [None]
  - MENTAL STATUS CHANGES [None]
  - MUSCLE SPASMS [None]
  - MYALGIA [None]
  - NAUSEA [None]
  - PAIN [None]
  - POLYDIPSIA [None]
  - VOMITING [None]
